FAERS Safety Report 21381566 (Version 2)
Quarter: 2022Q3

REPORT INFORMATION
  Report Type: Spontaneous
  Country: US (occurrence: US)
  Receive Date: 20220927
  Receipt Date: 20220928
  Transmission Date: 20221026
  Serious: No
  Sender: FDA-Public Use
  Company Number: US-PFIZER INC-202201187963

PATIENT
  Age: 67 Year
  Sex: Female

DRUGS (1)
  1. PAXLOVID [Suspect]
     Active Substance: NIRMATRELVIR\RITONAVIR
     Indication: COVID-19 treatment
     Dosage: UNK
     Dates: start: 20220922

REACTIONS (6)
  - Dry mouth [Unknown]
  - Dehydration [Unknown]
  - Insomnia [Unknown]
  - Dysphagia [Unknown]
  - Pollakiuria [Unknown]
  - Headache [Not Recovered/Not Resolved]
